FAERS Safety Report 16937465 (Version 2)
Quarter: 2019Q4

REPORT INFORMATION
  Report Type: Spontaneous
  Country: US (occurrence: US)
  Receive Date: 20191019
  Receipt Date: 20191028
  Transmission Date: 20200122
  Serious: No
  Sender: FDA-Public Use
  Company Number: US-009507513-1910USA011832

PATIENT
  Sex: Female

DRUGS (1)
  1. NEXPLANON [Suspect]
     Active Substance: ETONOGESTREL
     Indication: CONTRACEPTION
     Dosage: 1 DOSAGE FORM (68 MILLIGRAM) EVERY 3 YEARS
     Route: 059
     Dates: start: 20190817, end: 20191016

REACTIONS (7)
  - Implant site extravasation [Not Recovered/Not Resolved]
  - Skin ulcer haemorrhage [Not Recovered/Not Resolved]
  - Complication of device removal [Recovered/Resolved]
  - Implant site pustules [Not Recovered/Not Resolved]
  - Implant site irritation [Not Recovered/Not Resolved]
  - Implant site erythema [Not Recovered/Not Resolved]
  - Implant site cellulitis [Not Recovered/Not Resolved]

NARRATIVE: CASE EVENT DATE: 2019
